FAERS Safety Report 8929163 (Version 1)
Quarter: 2012Q4

REPORT INFORMATION
  Report Type: 
  Country: GB (occurrence: GB)
  Receive Date: 20121127
  Receipt Date: 20121127
  Transmission Date: 20130627
  Serious: Yes (Hospitalization)
  Sender: FDA-Public Use
  Company Number: PHHY2012GB106521

PATIENT
  Age: 73 Year
  Sex: Male
  Weight: 63 kg

DRUGS (9)
  1. FLUOROURACIL [Suspect]
     Indication: COLORECTAL CANCER
     Dosage: 2880 mg, QW2
     Route: 042
     Dates: start: 20111129, end: 20111212
  2. IRINOTECAN [Suspect]
     Indication: COLORECTAL CANCER
     Dosage: 297 mg, QW2
     Route: 042
     Dates: start: 20111129, end: 20111212
  3. LEUCOVORIN CALCIUM [Suspect]
     Dosage: 360 mg, QW2
     Route: 042
     Dates: start: 20111129, end: 20111212
  4. OXALIPLATIN [Suspect]
     Dosage: 153 mg, QW2
     Route: 042
     Dates: start: 20111129, end: 20111212
  5. BEVACIZUMAB [Suspect]
     Indication: COLORECTAL CANCER
     Dosage: 330 mg, QW2
     Route: 042
     Dates: start: 20111129, end: 20111212
  6. FINASTERIDE [Concomitant]
     Dosage: 5 mg, UNK
     Dates: start: 20110912
  7. ATORVASTATIN [Concomitant]
     Dosage: 40 mg, UNK
     Dates: start: 20040521
  8. RAMIPRIL [Concomitant]
     Dosage: 2.5 mg, UNK
     Dates: start: 20080801
  9. ASPIRIN [Concomitant]
     Dosage: 75 mg, UNK
     Dates: start: 19990319

REACTIONS (1)
  - Lower respiratory tract infection [Recovered/Resolved]
